FAERS Safety Report 4620258-3 (Version None)
Quarter: 2005Q1

REPORT INFORMATION
  Report Type: 
  Country: None (occurrence: None)
  Receive Date: 20050323
  Receipt Date: 20050308
  Transmission Date: 20050727
  Serious: Yes (Hospitalization, Disabling, Other)
  Sender: FDA-Public Use
  Company Number: 10531

PATIENT
  Age: 49 Year
  Sex: Male

DRUGS (1)
  1. MORPHINE [Suspect]
     Indication: BACK PAIN
     Dosage: 3.2 MG DAILY
     Dates: start: 20020801

REACTIONS (19)
  - AREFLEXIA [None]
  - ASTHENIA [None]
  - BACK PAIN [None]
  - BLOOD IMMUNOGLOBULIN G INCREASED [None]
  - CONSTIPATION [None]
  - CSF PROTEIN INCREASED [None]
  - CSF WHITE BLOOD CELL COUNT INCREASED [None]
  - DIPLEGIA [None]
  - FEELING ABNORMAL [None]
  - FLANK PAIN [None]
  - MUSCLE SPASMS [None]
  - MYELOPATHY [None]
  - NUCLEAR MAGNETIC RESONANCE IMAGING ABNORMAL [None]
  - PAIN [None]
  - PARAESTHESIA [None]
  - PARALYSIS FLACCID [None]
  - PARAPLEGIA [None]
  - SOMNOLENCE [None]
  - SPINAL OSTEOARTHRITIS [None]
